FAERS Safety Report 8287590-6 (Version None)
Quarter: 2012Q2

REPORT INFORMATION
  Report Type: 
  Country: None (occurrence: None)
  Receive Date: 20120416
  Receipt Date: 20120409
  Transmission Date: 20120825
  Serious: Yes (Hospitalization, Other)
  Sender: FDA-Public Use
  Company Number: PHHY2012AR030436

PATIENT
  Sex: Male

DRUGS (1)
  1. ONBREZ [Suspect]
     Indication: RESPIRATORY DISORDER
     Dosage: 150 UG, QD

REACTIONS (3)
  - PROSTATOMEGALY [None]
  - URINARY RETENTION [None]
  - URINARY TRACT INFECTION [None]
